FAERS Safety Report 21017318 (Version 5)
Quarter: 2024Q1

REPORT INFORMATION
  Report Type: Spontaneous
  Country: US (occurrence: US)
  Receive Date: 20220628
  Receipt Date: 20240227
  Transmission Date: 20240410
  Serious: Yes (Hospitalization, Other)
  Sender: FDA-Public Use
  Company Number: US-PFIZER INC-202200896357

PATIENT
  Age: 69 Year
  Sex: Female
  Weight: 67.12 kg

DRUGS (2)
  1. BOSULIF [Suspect]
     Active Substance: BOSUTINIB MONOHYDRATE
     Indication: Chronic myeloid leukaemia
     Dosage: 400 MG, DAILY
     Route: 048
  2. BOSULIF [Suspect]
     Active Substance: BOSUTINIB MONOHYDRATE
     Dosage: UNK

REACTIONS (8)
  - Hip fracture [Recovering/Resolving]
  - Limb operation [Unknown]
  - Dialysis [Unknown]
  - Weight decreased [Unknown]
  - Amnesia [Not Recovered/Not Resolved]
  - Hypoacusis [Unknown]
  - Nausea [Not Recovered/Not Resolved]
  - Product dose omission in error [Unknown]

NARRATIVE: CASE EVENT DATE: 20220315
